FAERS Safety Report 20580103 (Version 2)
Quarter: 2022Q2

REPORT INFORMATION
  Report Type: Report from Study
  Country: US (occurrence: US)
  Receive Date: 20220310
  Receipt Date: 20220408
  Transmission Date: 20220721
  Serious: Yes (Death, Other)
  Sender: FDA-Public Use
  Company Number: US-ACADIA PHARMACEUTICALS INC.-ACA-2022-PIM-000567

PATIENT
  Sex: Male

DRUGS (31)
  1. NUPLAZID [Suspect]
     Active Substance: PIMAVANSERIN TARTRATE
     Indication: Parkinson^s disease
     Dosage: 34 MILLIGRAM, QD
     Route: 048
     Dates: start: 20211119
  2. NUPLAZID [Suspect]
     Active Substance: PIMAVANSERIN TARTRATE
     Indication: Hallucination
     Dosage: 34 MILLIGRAM, QD
     Route: 048
     Dates: start: 20211210, end: 20220212
  3. NUPLAZID [Suspect]
     Active Substance: PIMAVANSERIN TARTRATE
     Indication: Hallucination, visual
  4. NOURIANZ [Concomitant]
     Active Substance: ISTRADEFYLLINE
     Dosage: 20 MILLIGRAM, QD
     Route: 048
  5. RYTARY [Concomitant]
     Active Substance: CARBIDOPA\LEVODOPA
     Dosage: 48.75-195 MG, TID
     Route: 048
  6. ACETAMINOPHEN [Concomitant]
     Active Substance: ACETAMINOPHEN
     Indication: Body temperature increased
     Dosage: 650MG, UNWRAP AND INSERT 1 SUPPOSITORY RECTALLY EVERY 6 HOURS AS NEEDED
     Route: 054
  7. ATROPINE [Concomitant]
     Active Substance: ATROPINE
     Indication: Secretion discharge
     Dosage: (0.75% ORAL SOL.) PLACE TWO DROP BY MOUTH/UNDER TONGUE EVERY 2 TO 4 HOURS AS NEEDED
  8. BISACODYL [Concomitant]
     Active Substance: BISACODYL
     Indication: Constipation
     Dosage: 10 MILLIGRAM, UNWRAP AND INSERT 1 SUPPOSITORY RECTALLY ONCE DAILY AS NEEDED
     Route: 054
  9. CEFDINIR [Concomitant]
     Active Substance: CEFDINIR
     Dosage: 300 MILLIGRAM, BID (1 CAPSULE)
     Route: 048
  10. CLONAZEPAM [Concomitant]
     Active Substance: CLONAZEPAM
     Dosage: 0.5MG TAKE 1 TAB IN THE MORNING AND 1 TAB IN THE AFTERNOON AND 2 TABS AT BEDTIME
  11. COMFORT [ACETYLSALICYLIC ACID] [Concomitant]
     Dosage: EMERGENCY KIT
  12. DIVALPROEX SODIUM [Concomitant]
     Active Substance: DIVALPROEX SODIUM
     Dosage: 500 MILLIGRAM, BID
     Route: 048
  13. DONEPEZIL [Concomitant]
     Active Substance: DONEPEZIL
     Dosage: 10 MILLIGRAM, QPM
  14. ENSURE [Concomitant]
     Active Substance: AMINO ACIDS\DEXTROSE\ELECTROLYTES NOS\SOYBEAN OIL\VITAMINS
     Dosage: TUE/THURS
  15. FEXOFENADINE [Concomitant]
     Active Substance: FEXOFENADINE HYDROCHLORIDE
     Dosage: 180 MILLIGRAM, 1 QD PRN
  16. FINASTERIDE [Concomitant]
     Active Substance: FINASTERIDE
     Dosage: 5 MILLIGRAM
  17. LORAZEPAM [Concomitant]
     Active Substance: LORAZEPAM
     Indication: Agitation
     Dosage: 2MG/ML, TAKE 0.25-1ML BY MOUTH/UNDER TONGUE EVERY 2 TO 4 HOURSE AS NEEDED
  18. ASPIRIN [Concomitant]
     Active Substance: ASPIRIN
     Dosage: 81 MILLIGRAM, QD
  19. MAGNESIUM [Concomitant]
     Active Substance: MAGNESIUM
     Dosage: 400 MILLIGRAM, QD
  20. MELATONIN [Concomitant]
     Active Substance: MELATONIN
     Dosage: 5 MILLIGRAM, QHS PRN
  21. METAMUCIL [Concomitant]
     Active Substance: PLANTAGO SEED
     Dosage: 4 CAPS, QD
  22. MIRTAZAPINE [Concomitant]
     Active Substance: MIRTAZAPINE
     Dosage: 30 MILLIGRAM, QD
     Route: 048
  23. MORPHINE [Concomitant]
     Active Substance: MORPHINE
     Indication: Pain
     Dosage: 20MG/ML, TAKE 0.25ML TO 1ML BY MOUTH/UNDER TONGUE EVERY 1 HOUR AS NEEDED
  24. MORPHINE [Concomitant]
     Active Substance: MORPHINE
     Indication: Dyspnoea
  25. PROMETHAZINE [Concomitant]
     Active Substance: PROMETHAZINE HYDROCHLORIDE
     Indication: Nausea
     Dosage: 25 MILLIGRAM, TAKE 1 TAB BY MOUTH EVERY 6 HOURS AS NEEDED
  26. PROMETHAZINE [Concomitant]
     Active Substance: PROMETHAZINE HYDROCHLORIDE
     Indication: Vomiting
  27. SIMETHICONE (DIMETHICONE) [Concomitant]
     Active Substance: DIMETHICONE
     Dosage: 125 MILLIGRAM, QD, PRN
  28. SIMVASTATIN [Concomitant]
     Active Substance: SIMVASTATIN
     Dosage: 40 MILLIGRAM; QPM
  29. TYLENOL [Concomitant]
     Active Substance: ACETAMINOPHEN
     Dosage: 500 MILLIGRAM, 1-2 QD, PRN
  30. VITAMIN C + ROSEHIP [Concomitant]
     Dosage: 500 MILLIGRAM, QD
  31. ACETAMINOPHEN\HYDROCODONE [Concomitant]
     Active Substance: ACETAMINOPHEN\HYDROCODONE
     Dosage: 5 MG/325 MG

REACTIONS (3)
  - Eating disorder [Recovered/Resolved]
  - Failure to thrive [Recovered/Resolved]
  - Fall [Recovered/Resolved]
